FAERS Safety Report 15305242 (Version 1)
Quarter: 2018Q3

REPORT INFORMATION
  Report Type: Spontaneous
  Country: US (occurrence: US)
  Receive Date: 20180822
  Receipt Date: 20180822
  Transmission Date: 20181010
  Serious: No
  Sender: FDA-Public Use
  Company Number: US-GALDERMA-US18023816

PATIENT
  Age: 32 Year
  Sex: Female

DRUGS (7)
  1. PROACTIV MOISTURE REPAIR [Concomitant]
     Active Substance: COSMETICS
     Indication: SCAR
     Route: 061
     Dates: start: 20180502, end: 20180514
  2. PROACTIV MD ADAPALENE ACNE TREATMENT [Suspect]
     Active Substance: ADAPALENE
     Indication: SCAR
     Dosage: 0.1%
     Route: 061
     Dates: start: 20180502, end: 20180514
  3. PROACTIV MD DEEP CLEANSING FACE WASH [Concomitant]
     Active Substance: COSMETICS
     Indication: SCAR
     Route: 061
     Dates: start: 20180502, end: 20180514
  4. PROACTIV SKIN PURIFYING MASK [Concomitant]
     Active Substance: SULFUR
     Indication: SCAR
     Route: 061
     Dates: start: 20180502, end: 20180514
  5. PROACTIV MD DAILY OIL CONTROL SPF 30 [Suspect]
     Active Substance: AVOBENZONE\OCTISALATE\OCTOCRYLENE
     Indication: SCAR
     Route: 061
     Dates: start: 20180502, end: 20180514
  6. PROACTIV GREEN TEA MOISTURIZER [Concomitant]
     Active Substance: COSMETICS
     Indication: SCAR
     Route: 061
     Dates: start: 20180502, end: 20180514
  7. PROACTIV EYE BRIGHTENING SERUM [Concomitant]
     Active Substance: COSMETICS
     Indication: SCAR
     Route: 061
     Dates: start: 20180502, end: 20180514

REACTIONS (2)
  - Product use in unapproved indication [Recovered/Resolved]
  - Dry skin [Not Recovered/Not Resolved]

NARRATIVE: CASE EVENT DATE: 201805
